FAERS Safety Report 17824626 (Version 1)
Quarter: 2020Q2

REPORT INFORMATION
  Report Type: Spontaneous
  Country: US (occurrence: US)
  Receive Date: 20200526
  Receipt Date: 20200526
  Transmission Date: 20200714
  Serious: No
  Sender: FDA-Public Use
  Company Number: US-009507513-2005USA003687

PATIENT
  Sex: Male

DRUGS (3)
  1. TEMODAR [Suspect]
     Active Substance: TEMOZOLOMIDE
     Indication: MENINGIOMA
     Dosage: 50 MILLIGRAM/SQ. METER, CYCLE 1
     Dates: start: 201307
  2. TEMODAR [Suspect]
     Active Substance: TEMOZOLOMIDE
     Dosage: 200 MILLIGRAM/SQ. METER, 8 ADDITIONAL CYCLES
     Dates: start: 201610, end: 201705
  3. TEMODAR [Suspect]
     Active Substance: TEMOZOLOMIDE
     Indication: PARAGANGLION NEOPLASM
     Dosage: 200 MILLIGRAM/SQ. METER, MONTHLY CYCLES FOR 5 DAYS EACH
     Dates: end: 201408

REACTIONS (1)
  - Off label use [Unknown]

NARRATIVE: CASE EVENT DATE: 201307
